FAERS Safety Report 7369878-6 (Version None)
Quarter: 2011Q1

REPORT INFORMATION
  Report Type: 
  Country: None (occurrence: None)
  Receive Date: 20110323
  Receipt Date: 20100914
  Transmission Date: 20110831
  Serious: Yes (Hospitalization)
  Sender: FDA-Public Use
  Company Number: US-BAYER-201030037NA

PATIENT
  Sex: Female
  Weight: 61.224 kg

DRUGS (5)
  1. ESTRACE [Concomitant]
     Dosage: DAILY DOSE 1 MG
  2. YASMIN [Suspect]
     Indication: PREMATURE MENOPAUSE
     Dosage: UNK
  3. PROVERA [Concomitant]
     Dosage: DAILY DOSE 5 MG
  4. SYNTHROID [Concomitant]
     Indication: HYPOTHYROIDISM
  5. YASMIN [Suspect]

REACTIONS (1)
  - DEEP VEIN THROMBOSIS [None]
